FAERS Safety Report 7124941-X (Version None)
Quarter: 2010Q4

REPORT INFORMATION
  Report Type: 
  Country: None (occurrence: None)
  Receive Date: 20101129
  Receipt Date: 20090514
  Transmission Date: 20110411
  Serious: Yes (Death, Hospitalization, Other)
  Sender: FDA-Public Use
  Company Number: DE-CELGENEUS-062-50794-10100023

PATIENT
  Age: 71 Year
  Sex: Female

DRUGS (2)
  1. VIDAZA [Suspect]
     Indication: ACUTE MYELOID LEUKAEMIA
     Route: 065
     Dates: start: 20080305, end: 20080311
  2. VIDAZA [Suspect]
     Route: 065
     Dates: start: 20080101, end: 20090213

REACTIONS (1)
  - ACUTE MYELOID LEUKAEMIA [None]
